FAERS Safety Report 5696436-1 (Version None)
Quarter: 2008Q2

REPORT INFORMATION
  Report Type: 
  Country: None (occurrence: None)
  Receive Date: 20080408
  Receipt Date: 20080328
  Transmission Date: 20081010
  Serious: Yes (Congenital Anomaly, Other)
  Sender: FDA-Public Use
  Company Number: GB-ABBOTT-08P-167-0443060-00

PATIENT
  Sex: Male

DRUGS (1)
  1. VALPROATE SODIUM [Suspect]
     Indication: DRUG EXPOSURE DURING PREGNANCY
     Route: 064

REACTIONS (28)
  - ABDOMINAL HERNIA [None]
  - ABNORMAL BEHAVIOUR [None]
  - AGGRESSION [None]
  - ASTIGMATISM [None]
  - ATTENTION DEFICIT/HYPERACTIVITY DISORDER [None]
  - ATTENTION-SEEKING BEHAVIOUR [None]
  - BLOOD SODIUM DECREASED [None]
  - CARDIAC MURMUR [None]
  - CONDUCTIVE DEAFNESS [None]
  - CONGENITAL NOSE MALFORMATION [None]
  - DRUG EXPOSURE DURING PREGNANCY [None]
  - DYSMORPHISM [None]
  - EXPRESSIVE LANGUAGE DISORDER [None]
  - FOETAL ANTICONVULSANT SYNDROME [None]
  - FOOT DEFORMITY [None]
  - HYPERMETROPIA [None]
  - HYPERTELORISM OF ORBIT [None]
  - ILLITERACY [None]
  - LEARNING DISORDER [None]
  - LIP DISORDER [None]
  - MICROCEPHALY [None]
  - OTITIS MEDIA [None]
  - OXYGEN SATURATION DECREASED [None]
  - PLACENTAL TRANSFUSION SYNDROME [None]
  - PREMATURE BABY [None]
  - SKULL MALFORMATION [None]
  - SPEECH DISORDER [None]
  - TREATMENT NONCOMPLIANCE [None]
